FAERS Safety Report 4439284-2 (Version None)
Quarter: 2004Q3

REPORT INFORMATION
  Report Type: 
  Country: None (occurrence: None)
  Receive Date: 20040831
  Receipt Date: 20040818
  Transmission Date: 20050211
  Serious: Yes (Death)
  Sender: FDA-Public Use
  Company Number: 2004-BP-07008BP

PATIENT
  Age: 45 Year
  Sex: Female

DRUGS (1)
  1. MIRAPEX [Suspect]
     Dosage: PO
     Route: 048

REACTIONS (1)
  - CARDIAC ARREST [None]
